FAERS Safety Report 8960579 (Version 1)
Quarter: 2012Q4

REPORT INFORMATION
  Report Type: Spontaneous
  Country: TH (occurrence: None)
  Receive Date: 20121203
  Receipt Date: 20121203
  Transmission Date: 20130627
  Serious: Yes (Other)
  Sender: FDA-Public Use
  Company Number: TH-MACLEODS PHARMA-000042

PATIENT
  Age: 65 Year
  Sex: Female

DRUGS (1)
  1. AMLODIPINE [Suspect]
     Indication: METABOLIC SYNDROME

REACTIONS (2)
  - Stevens-Johnson syndrome [None]
  - Stomatitis [None]
